FAERS Safety Report 5453733-2 (Version None)
Quarter: 2007Q3

REPORT INFORMATION
  Report Type: 
  Country: None (occurrence: None)
  Receive Date: 20070917
  Receipt Date: 20070910
  Transmission Date: 20080115
  Serious: Yes (Hospitalization, Disabling)
  Sender: FDA-Public Use
  Company Number: JP-BRISTOL-MYERS SQUIBB COMPANY-13828884

PATIENT
  Age: 78 Year
  Sex: Male

DRUGS (8)
  1. ENDOXAN [Suspect]
     Indication: DIFFUSE LARGE B-CELL LYMPHOMA STAGE IV
     Dosage: PATIENT RECEIVED 1ST COURSE OF CYCLOPHOSPHAMIDE 900MG/DAY FROM 16-FEB-2007 T0 24-APR-2007.
     Route: 041
     Dates: start: 20070424
  2. THERARUBICIN [Suspect]
     Indication: DIFFUSE LARGE B-CELL LYMPHOMA STAGE IV
     Dosage: PATIENT RECEIVED 1ST COURSE OF THERARUBICIN 900MG/DAY FROM 16-FEB-2007 T0 24-APR-2007.
     Route: 041
     Dates: start: 20070424
  3. ONCOVIN [Suspect]
     Indication: DIFFUSE LARGE B-CELL LYMPHOMA STAGE IV
     Dosage: 1ST COURSE: 1.7MG ON 16-FEB-2007 ONLY.RESTARTED WITH 1.8MG/DAY FROM 13-MAR-2007 TO 24-APR-2007.
     Route: 042
     Dates: start: 20070424
  4. RITUXAN [Suspect]
     Indication: DIFFUSE LARGE B-CELL LYMPHOMA STAGE IV
     Dosage: 1ST COURSE WAS STARTED OF RITUXIMAB WAS STARTED ON 26-APR-2007.
     Route: 041
     Dates: start: 20070420
  5. PREDONINE [Concomitant]
     Indication: NON-HODGKIN'S LYMPHOMA
     Dosage: 40MG(ADMINISTERED 6 TIMES);50MG FROM 19-FEB-2007 TO 28-APR-2007(ADMININISTERED 20 TIMES).
     Dates: start: 20070126, end: 20070430
  6. ALLOPURINOL [Concomitant]
  7. ATELEC [Concomitant]
  8. RENIVACE [Concomitant]

REACTIONS (2)
  - INTERSTITIAL LUNG DISEASE [None]
  - PYREXIA [None]
